FAERS Safety Report 9413850 (Version 2)
Quarter: 2013Q3

REPORT INFORMATION
  Report Type: Spontaneous
  Country: US (occurrence: US)
  Receive Date: 20130723
  Receipt Date: 20130812
  Transmission Date: 20140515
  Serious: Yes (Hospitalization, Congenital Anomaly, Other)
  Sender: FDA-Public Use
  Company Number: US-PFIZER INC-2013212832

PATIENT
  Sex: Male

DRUGS (5)
  1. ZOLOFT [Suspect]
     Indication: DEPRESSION
     Dosage: UNK
     Route: 064
     Dates: start: 20011217
  2. PAXIL [Concomitant]
     Dosage: UNK
     Route: 064
  3. TOPROL [Concomitant]
     Dosage: UNK
     Route: 064
  4. PRENATAL VITAMINS [Concomitant]
     Dosage: UNK
     Route: 064
  5. IRON SUPPLEMENTS [Concomitant]
     Dosage: UNK
     Route: 064

REACTIONS (8)
  - Maternal exposure during pregnancy [Unknown]
  - Patent ductus arteriosus [Unknown]
  - Persistent foetal circulation [Unknown]
  - Deafness neurosensory [Unknown]
  - Developmental delay [Unknown]
  - Premature baby [Unknown]
  - Respiratory disorder [Unknown]
  - Lung disorder [Unknown]
